FAERS Safety Report 16053883 (Version 8)
Quarter: 2020Q2

REPORT INFORMATION
  Report Type: Report from Study
  Country: US (occurrence: US)
  Receive Date: 20190308
  Receipt Date: 20200409
  Transmission Date: 20200713
  Serious: Yes (Hospitalization)
  Sender: FDA-Public Use
  Company Number: US-ACTELION-A-NJ2018-165643

PATIENT
  Age: 73 Year
  Sex: Female
  Weight: 54.42 kg

DRUGS (10)
  1. UPTRAVI [Suspect]
     Active Substance: SELEXIPAG
     Indication: PULMONARY HYPERTENSION
     Dosage: 1600 MCG, BID
     Route: 048
  2. UPTRAVI [Suspect]
     Active Substance: SELEXIPAG
     Dosage: 1200 MCG, BID
     Route: 048
  3. UPTRAVI [Suspect]
     Active Substance: SELEXIPAG
     Dosage: 1000 MCG, BID
     Route: 048
  4. UPTRAVI [Suspect]
     Active Substance: SELEXIPAG
     Dosage: 2600 MCG, BID
     Route: 048
  5. WARFARIN [Concomitant]
     Active Substance: WARFARIN
  6. LIPITOR [Concomitant]
     Active Substance: ATORVASTATIN CALCIUM
  7. REVATIO [Concomitant]
     Active Substance: SILDENAFIL CITRATE
  8. UPTRAVI [Suspect]
     Active Substance: SELEXIPAG
     Dosage: 1400 MCG, BID
     Route: 048
  9. LETAIRIS [Concomitant]
     Active Substance: AMBRISENTAN
  10. UPTRAVI [Suspect]
     Active Substance: SELEXIPAG
     Dosage: 2400 MCG, BID
     Route: 048

REACTIONS (29)
  - Influenza like illness [Unknown]
  - Hypotension [Unknown]
  - Pericardial effusion [Unknown]
  - Pain [Unknown]
  - Fall [Unknown]
  - Dizziness postural [Unknown]
  - Anxiety [Unknown]
  - Pyrexia [Unknown]
  - Chills [Unknown]
  - Loss of personal independence in daily activities [Unknown]
  - Myalgia [Unknown]
  - Oxygen saturation decreased [Unknown]
  - Limb injury [Unknown]
  - Dizziness [Unknown]
  - Memory impairment [Unknown]
  - Multiple allergies [Not Recovered/Not Resolved]
  - Cerebrovascular accident [Unknown]
  - Accidental overdose [Unknown]
  - Asthenia [Unknown]
  - Depression [Unknown]
  - Pneumonia [Unknown]
  - Fatigue [Not Recovered/Not Resolved]
  - Nausea [Unknown]
  - Headache [Not Recovered/Not Resolved]
  - Weight decreased [Unknown]
  - Pain in jaw [Unknown]
  - Ligament sprain [Unknown]
  - Nervousness [Unknown]
  - Diarrhoea [Unknown]

NARRATIVE: CASE EVENT DATE: 20181102
